FAERS Safety Report 8379154-0 (Version None)
Quarter: 2012Q1

REPORT INFORMATION
  Report Type: 
  Country: None (occurrence: None)
  Receive Date: 20120323
  Receipt Date: 20110502
  Transmission Date: 20120608
  Serious: Yes (Hospitalization, Other)
  Sender: FDA-Public Use
  Company Number: 163-21880-11032155

PATIENT
  Age: 87 Year
  Sex: Male
  Weight: 63.5036 kg

DRUGS (5)
  1. COUMADIN [Concomitant]
  2. REVLIMID [Suspect]
     Indication: MULTIPLE MYELOMA
     Dosage: 25 MG, 1 IN 1 D, PO ; 25 MG, 1 IN 1 D, PO ; 25 MG, 1 IN 1 D, PO ; 12.5 MG, 1 IN 2 D, PO
     Route: 048
     Dates: start: 20110118, end: 20110301
  3. REVLIMID [Suspect]
     Indication: MULTIPLE MYELOMA
     Dosage: 25 MG, 1 IN 1 D, PO ; 25 MG, 1 IN 1 D, PO ; 25 MG, 1 IN 1 D, PO ; 12.5 MG, 1 IN 2 D, PO
     Route: 048
     Dates: start: 20081101
  4. REVLIMID [Suspect]
     Indication: MULTIPLE MYELOMA
     Dosage: 25 MG, 1 IN 1 D, PO ; 25 MG, 1 IN 1 D, PO ; 25 MG, 1 IN 1 D, PO ; 12.5 MG, 1 IN 2 D, PO
     Route: 048
     Dates: start: 20100601
  5. REVLIMID [Suspect]
     Indication: MULTIPLE MYELOMA
     Dosage: 25 MG, 1 IN 1 D, PO ; 25 MG, 1 IN 1 D, PO ; 25 MG, 1 IN 1 D, PO ; 12.5 MG, 1 IN 2 D, PO
     Route: 048
     Dates: start: 20090501

REACTIONS (2)
  - PLATELET COUNT DECREASED [None]
  - HAEMOGLOBIN DECREASED [None]
